FAERS Safety Report 13009089 (Version 7)
Quarter: 2018Q3

REPORT INFORMATION
  Report Type: Spontaneous
  Country: US (occurrence: US)
  Receive Date: 20161208
  Receipt Date: 20180713
  Transmission Date: 20181010
  Serious: Yes (Hospitalization)
  Sender: FDA-Public Use
  Company Number: US-ACTELION-A-NJ2016-146548

PATIENT
  Age: 56 Year
  Sex: Female
  Weight: 72.56 kg

DRUGS (5)
  1. OPSUMIT [Suspect]
     Active Substance: MACITENTAN
     Indication: PULMONARY HYPERTENSION
     Dosage: 10 MG, QD
     Route: 048
     Dates: start: 20161102
  2. ADCIRCA [Concomitant]
     Active Substance: TADALAFIL
  3. UPTRAVI [Suspect]
     Active Substance: SELEXIPAG
     Indication: PULMONARY HYPERTENSION
     Dosage: 800 MCG, BID
     Route: 048
  4. UPTRAVI [Suspect]
     Active Substance: SELEXIPAG
     Dosage: 200 MCG, BID
     Route: 048
     Dates: start: 20160317
  5. UPTRAVI [Suspect]
     Active Substance: SELEXIPAG
     Dosage: 800 MG, QAM
     Route: 048

REACTIONS (10)
  - Respiratory failure [Unknown]
  - Dyspnoea [Unknown]
  - Diarrhoea [Unknown]
  - Upper respiratory tract congestion [Unknown]
  - Nasal congestion [Unknown]
  - Headache [Unknown]
  - Drug dose omission [Unknown]
  - Seasonal allergy [Unknown]
  - Respiratory tract infection [Unknown]
  - Extra dose administered [Unknown]

NARRATIVE: CASE EVENT DATE: 20170924
